FAERS Safety Report 4866142-1 (Version None)
Quarter: 2005Q4

REPORT INFORMATION
  Report Type: 
  Country: None (occurrence: None)
  Receive Date: 20051221
  Receipt Date: 20051207
  Transmission Date: 20060501
  Serious: Yes (Hospitalization)
  Sender: FDA-Public Use
  Company Number: URSO 2005-028

PATIENT
  Age: 50 Year
  Sex: Male

DRUGS (7)
  1. URSO TABLETS 50MG (URSODESOXYCHOLIC ACID) [Suspect]
     Indication: BILIARY CIRRHOSIS PRIMARY
     Dosage: 150MG, 300MG, 450MG, 600MG PO
     Route: 048
     Dates: start: 20010522, end: 20010621
  2. URSO TABLETS 50MG (URSODESOXYCHOLIC ACID) [Suspect]
     Indication: BILIARY CIRRHOSIS PRIMARY
     Dosage: 150MG, 300MG, 450MG, 600MG PO
     Route: 048
     Dates: start: 20010622, end: 20010719
  3. URSO TABLETS 50MG (URSODESOXYCHOLIC ACID) [Suspect]
     Indication: BILIARY CIRRHOSIS PRIMARY
     Dosage: 150MG, 300MG, 450MG, 600MG PO
     Route: 048
     Dates: start: 20010720, end: 20010820
  4. URSO TABLETS 50MG (URSODESOXYCHOLIC ACID) [Suspect]
     Indication: BILIARY CIRRHOSIS PRIMARY
     Dosage: 150MG, 300MG, 450MG, 600MG PO
     Route: 048
     Dates: start: 20010821
  5. MERCAZOLE (THIAMAZOLE) [Suspect]
     Dates: start: 20041021
  6. PREDNISOLONE (PREDONINE) [Concomitant]
  7. CALCIUM L-ASPARTATE (ASPARA-CA) [Concomitant]

REACTIONS (10)
  - ACQUIRED HYDROCELE [None]
  - BASEDOW'S DISEASE [None]
  - CONDITION AGGRAVATED [None]
  - DIABETES MELLITUS [None]
  - HEPATIC FUNCTION ABNORMAL [None]
  - HYPOAESTHESIA [None]
  - LIVER DISORDER [None]
  - PLATELET COUNT DECREASED [None]
  - RED BLOOD CELL COUNT DECREASED [None]
  - WEIGHT DECREASED [None]
